FAERS Safety Report 6577723-1 (Version None)
Quarter: 2010Q1

REPORT INFORMATION
  Report Type: 
  Country: None (occurrence: None)
  Receive Date: 20100211
  Receipt Date: 20100202
  Transmission Date: 20100710
  Serious: Yes (Other)
  Sender: FDA-Public Use
  Company Number: US-BAXTER-2010BH001857

PATIENT
  Age: 30 Year
  Sex: Male

DRUGS (1)
  1. HYDROMORPHONE HYDROCHLORIDE [Suspect]
     Indication: PAIN
     Route: 065
     Dates: start: 20090820

REACTIONS (6)
  - DEVICE FAILURE [None]
  - DYSPNOEA [None]
  - MEMORY IMPAIRMENT [None]
  - OVERDOSE [None]
  - PAIN IN EXTREMITY [None]
  - SPEECH DISORDER [None]
